FAERS Safety Report 8042306-3 (Version None)
Quarter: 2012Q1

REPORT INFORMATION
  Report Type: 
  Country: None (occurrence: None)
  Receive Date: 20120112
  Receipt Date: 20120111
  Transmission Date: 20120608
  Serious: Yes (Other)
  Sender: FDA-Public Use
  Company Number: US-ROCHE-790180

PATIENT
  Sex: Male
  Weight: 97.61 kg

DRUGS (1)
  1. ACCUTANE [Suspect]
     Indication: ACNE
     Route: 065
     Dates: start: 20020723, end: 20021113

REACTIONS (3)
  - DEPRESSION [None]
  - COLITIS ULCERATIVE [None]
  - SUICIDAL IDEATION [None]
